FAERS Safety Report 8112007-1 (Version None)
Quarter: 2012Q1

REPORT INFORMATION
  Report Type: 
  Country: None (occurrence: None)
  Receive Date: 20120131
  Receipt Date: 20120119
  Transmission Date: 20120608
  Serious: Yes (Other)
  Sender: FDA-Public Use
  Company Number: TPA2012A00393

PATIENT
  Age: 65 Year
  Sex: Female

DRUGS (16)
  1. CIPROFLOXACIN (CIPROFLOXACIN) (TABLETS) [Concomitant]
  2. MEPERIDINE (PETHIDINE) (TABLETS) [Concomitant]
  3. CRESTOR (ROSUVASTATIN) (TABLETS) [Concomitant]
  4. FLUCONAZOLE (FLUCONAZOLE) (TABLETS) [Concomitant]
  5. ERY-TAB EC (ERYTHROMYCIN) (TABLETS) [Concomitant]
  6. ETODOLAC ER (ETODOLAC) (TABLETS) [Concomitant]
  7. TRAMADOL/APAP (PARACETAMOL, TRAMADOL HYDROCHLORIDE) (TABLETS) [Concomitant]
  8. HYDROCODONE/APAP (PARACETAMOL, HYDROCODONE) (TABLETS) [Concomitant]
  9. NEOMYCIN (NEOMYCIN) (TABLETS) [Concomitant]
  10. ACTOS [Suspect]
     Indication: DIABETES MELLITUS
     Dosage: 30 MG, 1 IN 1 D
  11. LANTUS [Concomitant]
  12. PHENAZOPYRIDINE (PHENAZOPYRIDINE) (TABLETS) [Concomitant]
  13. DIAZEPAM [Concomitant]
  14. JANUMET (METFORMIN HYDROCHLORIDE, SITAGLIPTIN PHOSPHATE) (TABLETS) [Concomitant]
  15. RAMIPRIL (RAMIPRIL) (CAPSULES) [Concomitant]
  16. PEG 3350 ELECTROL (SODIUM BICARBONATE, POTASSIUM CHLORIDE, SODIUM CHLO [Concomitant]

REACTIONS (1)
  - BLADDER CANCER [None]
